FAERS Safety Report 7671704-2 (Version None)
Quarter: 2011Q3

REPORT INFORMATION
  Report Type: 
  Country: None (occurrence: None)
  Receive Date: 20110727
  Receipt Date: 20110713
  Transmission Date: 20111222
  Serious: Yes (Hospitalization)
  Sender: FDA-Public Use
  Company Number: 2011PROUSA00476

PATIENT
  Age: 76 Year
  Sex: Male
  Weight: 98 kg

DRUGS (5)
  1. PROVENGE [Suspect]
     Indication: PROSTATE CANCER METASTATIC
     Dosage: 250ML, SINGLE, INTRAVENOUS; 250ML. SINGLE, INTRAVENOUS; 250ML, SINGLE, INTRAVENOUS
     Route: 042
     Dates: start: 20110314, end: 20110314
  2. PROVENGE [Suspect]
     Indication: PROSTATE CANCER METASTATIC
     Dosage: 250ML, SINGLE, INTRAVENOUS; 250ML. SINGLE, INTRAVENOUS; 250ML, SINGLE, INTRAVENOUS
     Route: 042
     Dates: start: 20110328, end: 20110328
  3. PROVENGE [Suspect]
     Indication: PROSTATE CANCER METASTATIC
     Dosage: 250ML, SINGLE, INTRAVENOUS; 250ML. SINGLE, INTRAVENOUS; 250ML, SINGLE, INTRAVENOUS
     Route: 042
     Dates: start: 20110411, end: 20110411
  4. PROVENGE [Suspect]
  5. PROVENGE [Suspect]

REACTIONS (1)
  - LEUKOPENIA [None]
